FAERS Safety Report 13096213 (Version 2)
Quarter: 2018Q1

REPORT INFORMATION
  Report Type: Report from Study
  Country: US (occurrence: US)
  Receive Date: 20170109
  Receipt Date: 20180205
  Transmission Date: 20180508
  Serious: Yes (Other)
  Sender: FDA-Public Use
  Company Number: US-ROCHE-539952

PATIENT

DRUGS (3)
  1. CAPECITABINE. [Suspect]
     Active Substance: CAPECITABINE
     Route: 065
  2. OXALIPLATIN. [Suspect]
     Active Substance: OXALIPLATIN
     Indication: COLORECTAL CANCER METASTATIC
     Route: 042
  3. CAPECITABINE. [Suspect]
     Active Substance: CAPECITABINE
     Indication: COLORECTAL CANCER METASTATIC
     Route: 048

REACTIONS (16)
  - Hypertension [Unknown]
  - Intestinal perforation [Unknown]
  - Fatigue [Unknown]
  - Palmar-plantar erythrodysaesthesia syndrome [Unknown]
  - Leukopenia [Unknown]
  - Diarrhoea [Unknown]
  - Dehydration [Unknown]
  - Paraesthesia [Unknown]
  - Thrombocytopenia [Unknown]
  - Abdominal pain [Unknown]
  - Nausea [Unknown]
  - Febrile neutropenia [Unknown]
  - Impaired healing [Unknown]
  - Vomiting [Unknown]
  - Anaemia [Unknown]
  - Neutropenia [Unknown]
